FAERS Safety Report 6815718-0 (Version None)
Quarter: 2010Q3

REPORT INFORMATION
  Report Type: 
  Country: None (occurrence: None)
  Receive Date: 20100702
  Receipt Date: 20100623
  Transmission Date: 20110219
  Serious: Yes (Death)
  Sender: FDA-Public Use
  Company Number: DE-ABBOTT-10P-062-0642819-00

PATIENT
  Age: 58 Year
  Sex: Male
  Weight: 73.5 kg

DRUGS (3)
  1. ZEMPLAR [Suspect]
     Indication: HYPERPARATHYROIDISM SECONDARY
     Route: 042
     Dates: start: 20091101
  2. PHOSPHASORB [Concomitant]
     Indication: BLOOD PHOSPHORUS INCREASED
     Route: 048
  3. VITAMIN D AND ANALOGUES [Concomitant]
     Indication: RENAL FAILURE

REACTIONS (1)
  - CEREBRAL HAEMORRHAGE [None]
